FAERS Safety Report 20956490 (Version 4)
Quarter: 2022Q3

REPORT INFORMATION
  Report Type: Report from Study
  Country: US (occurrence: US)
  Receive Date: 20220614
  Receipt Date: 20220815
  Transmission Date: 20221027
  Serious: Yes (Hospitalization, Other)
  Sender: FDA-Public Use
  Company Number: US-TAKEDA-2022TUS038297

PATIENT
  Age: 70 Year
  Sex: Female

DRUGS (8)
  1. TEDUGLUTIDE [Suspect]
     Active Substance: TEDUGLUTIDE
     Indication: Short-bowel syndrome
     Dosage: 2.91 MILLIGRAM, QD
     Route: 042
     Dates: start: 20180216, end: 20190110
  2. TEDUGLUTIDE [Suspect]
     Active Substance: TEDUGLUTIDE
     Indication: Short-bowel syndrome
     Dosage: 2.91 MILLIGRAM, QD
     Route: 042
     Dates: start: 20180216, end: 20190110
  3. TEDUGLUTIDE [Suspect]
     Active Substance: TEDUGLUTIDE
     Indication: Short-bowel syndrome
     Dosage: 2.91 MILLIGRAM, QD
     Route: 042
     Dates: start: 20180216, end: 20190110
  4. TEDUGLUTIDE [Suspect]
     Active Substance: TEDUGLUTIDE
     Indication: Short-bowel syndrome
     Dosage: 2.91 MILLIGRAM, QD
     Route: 042
     Dates: start: 20180216, end: 20190110
  5. NICOTINE [Concomitant]
     Active Substance: NICOTINE
     Indication: Tobacco abuse
     Dosage: 4 MILLIGRAM
     Route: 048
     Dates: start: 20200714
  6. NICODERM CQ [Concomitant]
     Active Substance: NICOTINE
     Indication: Tobacco abuse
     Dosage: 7 MILLIGRAM, QD
     Route: 062
     Dates: start: 20211026, end: 20211111
  7. ERGOCALCIFEROL [Concomitant]
     Active Substance: ERGOCALCIFEROL
     Indication: Vitamin D deficiency
     Dosage: 1.25 MILLIGRAM, 1/WEEK
     Route: 048
     Dates: start: 20210610
  8. OCTREOTIDE [Concomitant]
     Active Substance: OCTREOTIDE
     Indication: Diarrhoea
     Dosage: 50 MICROGRAM, TID
     Route: 058
     Dates: start: 20220601

REACTIONS (1)
  - Device related sepsis [Recovered/Resolved]

NARRATIVE: CASE EVENT DATE: 20210119
